FAERS Safety Report 9063449 (Version 1)
Quarter: 2013Q1

REPORT INFORMATION
  Report Type: Report from Study
  Country: US (occurrence: US)
  Receive Date: 20130131
  Receipt Date: 20130131
  Transmission Date: 20140127
  Serious: Yes (Other)
  Sender: FDA-Public Use
  Company Number: US-ABBOTT-12P-163-1004917-00

PATIENT
  Sex: Female
  Weight: 62.65 kg

DRUGS (11)
  1. HUMIRA PEN [Suspect]
     Indication: RHEUMATOID ARTHRITIS
     Dates: start: 200712
  2. MAXIDE [Concomitant]
     Indication: HYPERTENSION
  3. PREMARIN VAGINAL [Concomitant]
     Indication: PRODUCT USED FOR UNKNOWN INDICATION
  4. CALCIUM + VITAMIN D [Concomitant]
     Indication: PRODUCT USED FOR UNKNOWN INDICATION
  5. MULTIVITAMIN [Concomitant]
     Indication: PRODUCT USED FOR UNKNOWN INDICATION
  6. PROBIOTIC [Concomitant]
     Indication: PRODUCT USED FOR UNKNOWN INDICATION
  7. MAGNESIUM [Concomitant]
     Indication: PRODUCT USED FOR UNKNOWN INDICATION
     Dosage: 400 - 500 MG DAILY
  8. BENTYL [Concomitant]
     Indication: PRODUCT USED FOR UNKNOWN INDICATION
  9. BONIVA [Concomitant]
     Indication: OSTEOPOROSIS
  10. FLUCONASE NASAL SPRAY [Concomitant]
     Indication: SEASONAL ALLERGY
  11. PEPCID [Concomitant]
     Indication: PRODUCT USED FOR UNKNOWN INDICATION

REACTIONS (6)
  - Cholecystectomy [Recovered/Resolved]
  - Irritable bowel syndrome [Unknown]
  - Gastrooesophageal reflux disease [Not Recovered/Not Resolved]
  - Seasonal allergy [Not Recovered/Not Resolved]
  - Abdominal pain [Unknown]
  - Abdominal discomfort [Unknown]
